FAERS Safety Report 14008974 (Version 3)
Quarter: 2018Q1

REPORT INFORMATION
  Report Type: Spontaneous
  Country: ES (occurrence: ES)
  Receive Date: 20170925
  Receipt Date: 20180223
  Transmission Date: 20180508
  Serious: Yes (Hospitalization, Other)
  Sender: FDA-Public Use
  Company Number: ES-AMGEN-ESPSP2017142442

PATIENT
  Age: 75 Year
  Sex: Female

DRUGS (9)
  1. ALPRAZOLAM. [Concomitant]
     Active Substance: ALPRAZOLAM
     Dosage: UNK
  2. AERIUS [Concomitant]
     Active Substance: DESLORATADINE
     Dosage: UNK
  3. DETRUSITOL [Concomitant]
     Active Substance: TOLTERODINE TARTRATE
     Dosage: UNK
  4. LEVOGASTROL [Concomitant]
     Dosage: UNK
  5. PROLIA [Suspect]
     Active Substance: DENOSUMAB
     Dosage: UNK
     Route: 065
  6. PROLIA [Suspect]
     Active Substance: DENOSUMAB
     Indication: OSTEOPOROSIS
     Dosage: UNK UNK, Q6MO
     Route: 065
     Dates: start: 20151202
  7. PROLIA [Suspect]
     Active Substance: DENOSUMAB
     Dosage: UNK
     Route: 065
  8. OMEPRAZOLE. [Concomitant]
     Active Substance: OMEPRAZOLE
     Dosage: UNK
  9. PROLIA [Suspect]
     Active Substance: DENOSUMAB
     Dosage: UNK
     Route: 065

REACTIONS (9)
  - Hepatic cyst [Unknown]
  - Pain in extremity [Unknown]
  - Iron deficiency [Unknown]
  - Atelectasis [Unknown]
  - Lupus-like syndrome [Recovering/Resolving]
  - Ascites [Unknown]
  - Thrombocytosis [Unknown]
  - Pain [Unknown]
  - Diplopia [Unknown]

NARRATIVE: CASE EVENT DATE: 2017
